FAERS Safety Report 23599083 (Version 2)
Quarter: 2024Q1

REPORT INFORMATION
  Report Type: Spontaneous
  Country: US (occurrence: US)
  Receive Date: 20240306
  Receipt Date: 20240327
  Transmission Date: 20240410
  Serious: No
  Sender: FDA-Public Use
  Company Number: US-LEO Pharma-368132

PATIENT
  Age: 31 Year
  Sex: Male

DRUGS (3)
  1. ADBRY [Suspect]
     Active Substance: TRALOKINUMAB-LDRM
     Indication: Dermatitis atopic
     Route: 058
     Dates: start: 20240119, end: 20240226
  2. EUCRISA [Concomitant]
     Active Substance: CRISABOROLE
     Indication: Eczema
     Dosage: 2%
  3. TRIAMCINOLONE [Concomitant]
     Active Substance: TRIAMCINOLONE
     Indication: Product used for unknown indication
     Dosage: 0.1% OINTMENT UP TO THREE TIMES WEEKLY NECK DOWN

REACTIONS (3)
  - Adverse reaction [Unknown]
  - Rash [Unknown]
  - Eye swelling [Unknown]
